FAERS Safety Report 6386760-1 (Version None)
Quarter: 2009Q4

REPORT INFORMATION
  Report Type: 
  Country: None (occurrence: None)
  Receive Date: 20091002
  Receipt Date: 20090924
  Transmission Date: 20100525
  Serious: Yes (Death, Life-Threatening)
  Sender: FDA-Public Use
  Company Number: A0809552A

PATIENT
  Age: 91 Year
  Sex: Female

DRUGS (2)
  1. ARIXTRA [Suspect]
     Indication: DRUG USE FOR UNKNOWN INDICATION
     Dosage: 2.5MG SINGLE DOSE
     Route: 058
  2. COUMADIN [Concomitant]

REACTIONS (2)
  - DEATH [None]
  - HAEMORRHAGE [None]
